FAERS Safety Report 6924963-5 (Version None)
Quarter: 2010Q3

REPORT INFORMATION
  Report Type: 
  Country: None (occurrence: None)
  Receive Date: 20100816
  Receipt Date: 20100810
  Transmission Date: 20110219
  Serious: Yes (Hospitalization)
  Sender: FDA-Public Use
  Company Number: US-BAYER-201018965BCC

PATIENT
  Age: 89 Year
  Sex: Female
  Weight: 45 kg

DRUGS (3)
  1. ASPIRIN [Suspect]
     Indication: ARTHRALGIA
     Dosage: BOTTLE COUNT UNKNOWN
     Route: 048
     Dates: start: 20070101
  2. BAYER QUICK RELEASE CRYSTALS [Suspect]
     Indication: PRODUCT USED FOR UNKNOWN INDICATION
     Dosage: TOTAL DAILY DOSE: 1 DF  UNIT DOSE: 1 DF
     Route: 045
     Dates: start: 20090101
  3. VITAMINS [Concomitant]
     Route: 065

REACTIONS (2)
  - CHOKING [None]
  - ULCER HAEMORRHAGE [None]
